FAERS Safety Report 5403195-6 (Version None)
Quarter: 2007Q3

REPORT INFORMATION
  Report Type: 
  Country: None (occurrence: None)
  Receive Date: 20070801
  Receipt Date: 20070720
  Transmission Date: 20080115
  Serious: Yes (Death, Hospitalization)
  Sender: FDA-Public Use
  Company Number: DE-PFIZER INC-2006011233

PATIENT
  Sex: Male
  Weight: 56 kg

DRUGS (7)
  1. SU-011,248 [Suspect]
     Indication: METASTATIC RENAL CELL CARCINOMA
     Route: 048
     Dates: start: 20051221, end: 20060119
  2. TRAMOL [Concomitant]
     Route: 048
  3. NOVALGIN [Concomitant]
     Route: 048
  4. LASIX [Concomitant]
     Dosage: DAILY DOSE:20MG
     Route: 048
  5. PANTOPRAZOLE SODIUM [Concomitant]
     Dosage: DAILY DOSE:40MG
     Route: 048
  6. ALIZAPRIDE [Concomitant]
     Route: 048
  7. PROMETHAZINE [Concomitant]
     Route: 048

REACTIONS (1)
  - CEREBRAL HAEMORRHAGE [None]
